FAERS Safety Report 20192950 (Version 1)
Quarter: 2021Q4

REPORT INFORMATION
  Report Type: Spontaneous
  Country: US (occurrence: US)
  Receive Date: 20211216
  Receipt Date: 20211216
  Transmission Date: 20220303
  Serious: No
  Sender: FDA-Public Use
  Company Number: US-BAUSCH-BL-2021-040745

PATIENT
  Sex: Female

DRUGS (3)
  1. LACRISERT [Suspect]
     Active Substance: HYDROXYPROPYL CELLULOSE
     Indication: Dry eye
     Dosage: TWICE IN A DAY IN EACH EYE.
     Route: 047
     Dates: start: 199010
  2. LACRISERT [Suspect]
     Active Substance: HYDROXYPROPYL CELLULOSE
     Dosage: TWICE IN A DAY IN EACH EYE.
     Route: 047
     Dates: start: 2021, end: 2021
  3. LACRISERT [Suspect]
     Active Substance: HYDROXYPROPYL CELLULOSE
     Dosage: ONE IN A DAY IN EACH EYE.
     Route: 047
     Dates: start: 2021

REACTIONS (5)
  - Instillation site dryness [Unknown]
  - Instillation site erythema [Unknown]
  - Therapy interrupted [Unknown]
  - Intentional product use issue [Unknown]
  - Product supply issue [Unknown]

NARRATIVE: CASE EVENT DATE: 20200101
